FAERS Safety Report 8607840-3 (Version None)
Quarter: 2012Q3

REPORT INFORMATION
  Report Type: 
  Country: None (occurrence: None)
  Receive Date: 20120723
  Receipt Date: 20120717
  Transmission Date: 20120928
  Serious: Yes (Life-Threatening, Hospitalization, Other)
  Sender: FDA-Public Use
  Company Number: 2012032725

PATIENT
  Sex: Female
  Weight: 156 kg

DRUGS (11)
  1. HUMATE-P [Suspect]
  2. HUMATE-P [Suspect]
  3. HUMATE-P [Suspect]
     Indication: VON WILLEBRAND'S DISEASE
     Dosage: SEE IMAGE
     Route: 042
     Dates: start: 20120616, end: 20120616
  4. HUMATE-P [Suspect]
     Indication: VON WILLEBRAND'S DISEASE
     Dosage: SEE IMAGE
     Route: 042
     Dates: start: 20120607
  5. HUMATE-P [Suspect]
     Indication: VON WILLEBRAND'S DISEASE
     Dosage: SEE IMAGE
     Route: 042
     Dates: start: 20120607
  6. HUMATE-P [Suspect]
     Indication: VON WILLEBRAND'S DISEASE
     Dosage: SEE IMAGE
     Route: 042
     Dates: start: 20120617, end: 20120619
  7. HUMATE-P [Suspect]
     Indication: VON WILLEBRAND'S DISEASE
     Dosage: SEE IMAGE
     Route: 042
     Dates: start: 20120616, end: 20120616
  8. HUMATE-P [Suspect]
     Indication: VON WILLEBRAND'S DISEASE
     Dosage: SEE IMAGE
     Route: 042
     Dates: start: 20120616, end: 20120616
  9. HUMATE-P [Suspect]
  10. HUMATE-P [Suspect]
  11. HUMATE-P [Suspect]

REACTIONS (1)
  - HAEMOLYSIS [None]
